FAERS Safety Report 17495843 (Version 1)
Quarter: 2020Q1

REPORT INFORMATION
  Report Type: Report from Study
  Country: US (occurrence: US)
  Receive Date: 20200304
  Receipt Date: 20200304
  Transmission Date: 20200409
  Serious: Yes (Hospitalization, Other)
  Sender: FDA-Public Use
  Company Number: NVSC2020US060681

PATIENT
  Age: 72 Year
  Sex: Male

DRUGS (1)
  1. ENTRESTO [Suspect]
     Active Substance: SACUBITRIL\VALSARTAN
     Indication: PRODUCT USED FOR UNKNOWN INDICATION
     Dosage: UNK UNK, BID
     Route: 048
     Dates: start: 201905

REACTIONS (5)
  - Abdominal pain [Recovered/Resolved with Sequelae]
  - Herpes zoster infection neurological [Recovered/Resolved with Sequelae]
  - Herpes zoster [Unknown]
  - Fatigue [Unknown]
  - Intestinal obstruction [Recovered/Resolved with Sequelae]

NARRATIVE: CASE EVENT DATE: 201911
